FAERS Safety Report 19907284 (Version 1)
Quarter: 2021Q4

REPORT INFORMATION
  Report Type: Spontaneous
  Country: US (occurrence: US)
  Receive Date: 20211001
  Receipt Date: 20211001
  Transmission Date: 20220304
  Serious: No
  Sender: FDA-Public Use
  Company Number: US-BRISTOL-MYERS SQUIBB COMPANY-BMS-2021-099333

PATIENT
  Age: 66 Year
  Sex: Female
  Weight: 101.59 kg

DRUGS (1)
  1. PRAVACHOL [Suspect]
     Active Substance: PRAVASTATIN SODIUM
     Indication: Blood cholesterol increased
     Dosage: 1/2 OF A TABLET TWICE A DAY
     Route: 048

REACTIONS (2)
  - Myalgia [Unknown]
  - Intentional product use issue [Unknown]
